FAERS Safety Report 18171705 (Version 4)
Quarter: 2021Q3

REPORT INFORMATION
  Report Type: Report from Study
  Country: None (occurrence: US)
  Receive Date: 20200820
  Receipt Date: 20210823
  Transmission Date: 20211014
  Serious: Yes (Hospitalization, Other)
  Sender: FDA-Public Use
  Company Number: US-ABBVIE-20K-163-3529565-00

PATIENT
  Sex: Male

DRUGS (4)
  1. CALQUENCE [Suspect]
     Active Substance: ACALABRUTINIB
     Indication: PRODUCT USED FOR UNKNOWN INDICATION
     Route: 065
  2. IMBRUVICA [Suspect]
     Active Substance: IBRUTINIB
     Indication: CHRONIC LYMPHOCYTIC LEUKAEMIA
     Route: 048
     Dates: start: 2020, end: 202007
  3. IMBRUVICA [Suspect]
     Active Substance: IBRUTINIB
     Route: 048
     Dates: start: 20200227
  4. IMBRUVICA [Suspect]
     Active Substance: IBRUTINIB
     Route: 048

REACTIONS (8)
  - Headache [Unknown]
  - Renal cancer [Unknown]
  - Pruritus [Unknown]
  - Urinary bladder haemorrhage [Unknown]
  - Abdominal discomfort [Unknown]
  - Blood urine present [Unknown]
  - Pain [Unknown]
  - Dyspepsia [Unknown]

NARRATIVE: CASE EVENT DATE: 2020
